FAERS Safety Report 24768156 (Version 1)
Quarter: 2024Q4

REPORT INFORMATION
  Report Type: Spontaneous
  Country: US (occurrence: None)
  Receive Date: 20241223
  Receipt Date: 20241223
  Transmission Date: 20250115
  Serious: Yes (Other)
  Sender: Public
  Company Number: None

PATIENT
  Age: 44 Year
  Sex: Female

DRUGS (2)
  1. ADALIMUMAB [Suspect]
     Active Substance: ADALIMUMAB
  2. ADALIMUMAB [Concomitant]
     Active Substance: ADALIMUMAB
     Dates: start: 20221012, end: 20240701

REACTIONS (1)
  - Hepatitis B antigen positive [None]

NARRATIVE: CASE EVENT DATE: 20240701
